FAERS Safety Report 7215454-5 (Version None)
Quarter: 2011Q1

REPORT INFORMATION
  Report Type: 
  Country: None (occurrence: None)
  Receive Date: 20110107
  Receipt Date: 20101220
  Transmission Date: 20110831
  Serious: Yes (Hospitalization, Congenital Anomaly)
  Sender: FDA-Public Use
  Company Number: A0681023A

PATIENT
  Sex: Female
  Weight: 4 kg

DRUGS (5)
  1. CLOMIPRAMINE HCL [Concomitant]
  2. PRENATAL VITAMINS [Concomitant]
  3. LORAZEPAM [Concomitant]
  4. CHROMAGEN [Concomitant]
     Dates: start: 19980624
  5. PAXIL [Suspect]
     Indication: DEPRESSION
     Dosage: 30MG AT NIGHT
     Dates: start: 19980401, end: 19980624

REACTIONS (4)
  - CONGENITAL ANOMALY [None]
  - MATERNAL DRUGS AFFECTING FOETUS [None]
  - ATRIAL SEPTAL DEFECT [None]
  - DRUG EXPOSURE DURING PREGNANCY [None]
